FAERS Safety Report 20160995 (Version 2)
Quarter: 2021Q4

REPORT INFORMATION
  Report Type: Spontaneous
  Country: CZ (occurrence: CZ)
  Receive Date: 20211208
  Receipt Date: 20211220
  Transmission Date: 20220303
  Serious: Yes (Hospitalization, Other)
  Sender: FDA-Public Use
  Company Number: CZ-TEVA-2021-CZ-1984844

PATIENT
  Age: 40 Year
  Sex: Male
  Weight: 80 kg

DRUGS (6)
  1. FLUTICASONE [Suspect]
     Active Substance: FLUTICASONE
     Indication: Seasonal allergy
     Dosage: USED OCCASIONALLY DURING THE POLLEN SEASON
     Route: 061
     Dates: start: 2020
  2. ALPHA LIPOIC ACID [Suspect]
     Active Substance: .ALPHA.-LIPOIC ACID
     Indication: Pain in extremity
     Route: 065
     Dates: start: 2020
  3. ALPHA LIPOIC ACID [Suspect]
     Active Substance: .ALPHA.-LIPOIC ACID
     Indication: Back pain
  4. PREDNISONE [Suspect]
     Active Substance: PREDNISONE
     Indication: Hypoglycaemia
     Dosage: 1 MG/KG DAILY;
     Route: 048
     Dates: start: 2020
  5. PREDNISONE [Suspect]
     Active Substance: PREDNISONE
     Dosage: .5 MG/KG DAILY;
     Route: 048
     Dates: start: 20200327
  6. LEVOCETIRIZINE [Concomitant]
     Active Substance: LEVOCETIRIZINE
     Indication: Seasonal allergy
     Route: 065
     Dates: start: 2020

REACTIONS (3)
  - Hypoglycaemia [Recovered/Resolved]
  - Insulin autoimmune syndrome [Recovered/Resolved]
  - Deep vein thrombosis [Recovered/Resolved]

NARRATIVE: CASE EVENT DATE: 20200101
